FAERS Safety Report 15923701 (Version 1)
Quarter: 2019Q1

REPORT INFORMATION
  Report Type: Spontaneous
  Country: US (occurrence: US)
  Receive Date: 20190111
  Receipt Date: 20190111
  Transmission Date: 20190417
  Serious: No
  Sender: FDA-Public Use
  Company Number: None

PATIENT
  Age: 33 Year
  Sex: Female

DRUGS (1)
  1. TALTZ [Suspect]
     Active Substance: IXEKIZUMAB
     Dates: start: 201810

REACTIONS (3)
  - Injection site reaction [None]
  - Diarrhoea [None]
  - Psoriasis [None]

NARRATIVE: CASE EVENT DATE: 20181011
